FAERS Safety Report 9530243 (Version 1)
Quarter: 2013Q3

REPORT INFORMATION
  Report Type: Spontaneous
  Country: US (occurrence: US)
  Receive Date: 20130917
  Receipt Date: 20130917
  Transmission Date: 20140515
  Serious: Yes (Death)
  Sender: FDA-Public Use
  Company Number: US-FRI-1000048820

PATIENT
  Age: 86 Year
  Sex: Male

DRUGS (11)
  1. DALIRESP [Suspect]
     Indication: BRONCHITIS CHRONIC
     Dosage: 500 MCG
     Route: 048
     Dates: start: 201204, end: 20130820
  2. DALIRESP [Suspect]
     Indication: CHRONIC OBSTRUCTIVE PULMONARY DISEASE
  3. SINGULAIR [Concomitant]
  4. DUONEB [Concomitant]
  5. CLONAZEPAM [Concomitant]
  6. CARDIZEM [Concomitant]
  7. NEXIUM [Concomitant]
  8. LASIX [Concomitant]
  9. POTASSIUM [Concomitant]
  10. CELEBREX [Concomitant]
  11. TRAMADOL [Concomitant]

REACTIONS (1)
  - Death [Fatal]
